FAERS Safety Report 5139260-0 (Version None)
Quarter: 2006Q4

REPORT INFORMATION
  Report Type: 
  Country: None (occurrence: None)
  Receive Date: 20061024
  Receipt Date: 20061016
  Transmission Date: 20070319
  Serious: Yes (Hospitalization)
  Sender: FDA-Public Use
  Company Number: 231221

PATIENT
  Age: 12 Year
  Sex: Female
  Weight: 45 kg

DRUGS (1)
  1. NUTROPIN AQ [Suspect]
     Indication: TURNER'S SYNDROME
     Dosage: 2.3 MG, 6/WEEK, SUBCUTANEOUS
     Route: 058
     Dates: start: 20051202

REACTIONS (2)
  - ASTHENIA [None]
  - VIRAL INFECTION [None]
